FAERS Safety Report 20442843 (Version 4)
Quarter: 2022Q2

REPORT INFORMATION
  Report Type: Report from Study
  Country: AR (occurrence: AR)
  Receive Date: 20220208
  Receipt Date: 20220505
  Transmission Date: 20220721
  Serious: Yes (Death, Hospitalization)
  Sender: FDA-Public Use
  Company Number: AR-NOVARTISPH-NVSC2022AR026009

PATIENT
  Age: 41 Year
  Sex: Female

DRUGS (2)
  1. KISQALI [Suspect]
     Active Substance: RIBOCICLIB
     Indication: Breast cancer metastatic
     Dosage: 600 MG, QD
     Route: 048
     Dates: start: 20211110
  2. FULVESTRANT [Suspect]
     Active Substance: FULVESTRANT
     Indication: Breast cancer metastatic
     Dosage: 250 MG, QMO
     Route: 058
     Dates: start: 20211110

REACTIONS (6)
  - Death [Fatal]
  - Pulmonary oedema [Recovering/Resolving]
  - Cough [Recovering/Resolving]
  - Pleural effusion [Unknown]
  - Incorrect dose administered [Unknown]
  - COVID-19 [Unknown]

NARRATIVE: CASE EVENT DATE: 20211110
